FAERS Safety Report 23565181 (Version 1)
Quarter: 2024Q1

REPORT INFORMATION
  Report Type: Report from Study
  Country: IN (occurrence: IN)
  Receive Date: 20240226
  Receipt Date: 20240226
  Transmission Date: 20240410
  Serious: Yes (Hospitalization)
  Sender: FDA-Public Use
  Company Number: IN-002147023-NVSC2023IN279642

PATIENT
  Age: 64 Year
  Sex: Female

DRUGS (2)
  1. RIBOCICLIB [Suspect]
     Active Substance: RIBOCICLIB
     Indication: Hormone receptor positive HER2 negative breast cancer
     Dosage: 600 MG, QD
     Route: 048
  2. CYCLOPHOSPHAMIDE [Concomitant]
     Active Substance: CYCLOPHOSPHAMIDE
     Indication: Product used for unknown indication
     Dosage: UNK
     Route: 065

REACTIONS (7)
  - Positron emission tomogram abnormal [Unknown]
  - Magnetic resonance imaging abnormal [Unknown]
  - Mucosal hypertrophy [Unknown]
  - Cerebral small vessel ischaemic disease [Unknown]
  - Total lung capacity decreased [Unknown]
  - Cough [Unknown]
  - Productive cough [Unknown]

NARRATIVE: CASE EVENT DATE: 20230408
